FAERS Safety Report 4416572-7 (Version None)
Quarter: 2004Q2

REPORT INFORMATION
  Report Type: 
  Country: None (occurrence: None)
  Receive Date: 20040630
  Receipt Date: 20040505
  Transmission Date: 20050107
  Serious: Yes (Death, Hospitalization)
  Sender: FDA-Public Use
  Company Number: 04P-163-0259668-00

PATIENT
  Sex: Female
  Weight: 96.1626 kg

DRUGS (4)
  1. HUMIRA [Suspect]
     Indication: RHEUMATOID ARTHRITIS
     Dosage: 40 MG, 1 IN 2 WK, SUBCUTANEOUS
     Route: 058
     Dates: start: 20040217, end: 20040302
  2. PREDNISONE [Concomitant]
  3. ARABA [Concomitant]
  4. OMEPRAZOLE [Concomitant]

REACTIONS (3)
  - CYSTITIS [None]
  - ESCHERICHIA SEPSIS [None]
  - GASTROINTESTINAL HAEMORRHAGE [None]
